FAERS Safety Report 8394221-3 (Version None)
Quarter: 2012Q2

REPORT INFORMATION
  Report Type: 
  Country: None (occurrence: None)
  Receive Date: 20120530
  Receipt Date: 20120523
  Transmission Date: 20120825
  Serious: No
  Sender: FDA-Public Use
  Company Number: BR-COVIDIEN/TYCO HEALTHCARE/MALLINCKRODT-T201201613

PATIENT
  Age: 48 Year
  Sex: Female

DRUGS (1)
  1. OPTIMARK [Suspect]
     Indication: NUCLEAR MAGNETIC RESONANCE IMAGING
     Dosage: 15 ML, SINGLE
     Dates: start: 20120426, end: 20120426

REACTIONS (9)
  - EYELID OEDEMA [None]
  - HEADACHE [None]
  - THROAT IRRITATION [None]
  - DYSGEUSIA [None]
  - NAUSEA [None]
  - VOMITING [None]
  - DYSPNOEA [None]
  - AURICULAR SWELLING [None]
  - INJECTION SITE ERYTHEMA [None]
